FAERS Safety Report 21847975 (Version 1)
Quarter: 2023Q1

REPORT INFORMATION
  Report Type: Spontaneous
  Country: US (occurrence: US)
  Receive Date: 20230111
  Receipt Date: 20230111
  Transmission Date: 20230417
  Serious: No
  Sender: FDA-Public Use
  Company Number: US-drreddys-SPO/USA/23/0159474

PATIENT
  Age: 16 Year
  Sex: Male

DRUGS (2)
  1. ACCUTANE [Suspect]
     Active Substance: ISOTRETINOIN
     Indication: Product used for unknown indication
     Dosage: RMA ISSUE DATE: 18 APRIL 2022 09:34:53 AM, 13 MAY 2022 07:33:06 AM, 12 SEPTEMBER 2022 01:42:48 PM, 1
  2. ZENATANE [Suspect]
     Active Substance: ISOTRETINOIN
     Indication: Product used for unknown indication
     Dosage: RMA ISSUE DATE: 24 DECEMBER 2022 03:10:26 PM, 21 JANUARY 2022 05:43:07 PM, 22 FEBRUARY 2022 09:01:29

REACTIONS (1)
  - Treatment noncompliance [Unknown]
